FAERS Safety Report 20075544 (Version 2)
Quarter: 2021Q4

REPORT INFORMATION
  Report Type: Spontaneous
  Country: JP (occurrence: JP)
  Receive Date: 20211116
  Receipt Date: 20211119
  Transmission Date: 20220303
  Serious: Yes (Hospitalization)
  Sender: FDA-Public Use
  Company Number: JP-UCBJ-CD202110327UCBPHAPROD

PATIENT
  Age: 25 Year
  Sex: Male

DRUGS (2)
  1. LEVETIRACETAM [Suspect]
     Active Substance: LEVETIRACETAM
     Indication: Seizure
     Route: 048
  2. LEVETIRACETAM [Suspect]
     Active Substance: LEVETIRACETAM
     Indication: Off label use

REACTIONS (5)
  - Acute kidney injury [Unknown]
  - Proteinuria [Recovered/Resolved]
  - Haematuria [Recovered/Resolved]
  - Tubulointerstitial nephritis [Unknown]
  - Off label use [Unknown]
